FAERS Safety Report 17720918 (Version 3)
Quarter: 2021Q4

REPORT INFORMATION
  Report Type: Spontaneous
  Country: US (occurrence: US)
  Receive Date: 20200428
  Receipt Date: 20211001
  Transmission Date: 20220303
  Serious: Yes (Other)
  Sender: FDA-Public Use
  Company Number: 2020SE55119

PATIENT
  Age: 65 Year
  Sex: Female
  Weight: 95.7 kg

DRUGS (54)
  1. NEXIUM [Suspect]
     Active Substance: ESOMEPRAZOLE MAGNESIUM
     Indication: Gastrooesophageal reflux disease
     Route: 048
     Dates: start: 200301, end: 201808
  2. NEXIUM [Suspect]
     Active Substance: ESOMEPRAZOLE MAGNESIUM
     Indication: Gastrooesophageal reflux disease
     Dosage: IDK
     Route: 048
     Dates: start: 2005
  3. NEXIUM 24HR [Suspect]
     Active Substance: ESOMEPRAZOLE MAGNESIUM
     Indication: Gastrooesophageal reflux disease
     Route: 048
     Dates: start: 200301, end: 201808
  4. NEXIUM 24HR [Suspect]
     Active Substance: ESOMEPRAZOLE MAGNESIUM
     Indication: Gastrooesophageal reflux disease
     Dosage: IDK
     Route: 048
     Dates: start: 2009
  5. PRILOSEC OTC [Suspect]
     Active Substance: OMEPRAZOLE MAGNESIUM
     Indication: Gastrooesophageal reflux disease
     Route: 048
     Dates: start: 200301, end: 201808
  6. PRILOSEC OTC [Suspect]
     Active Substance: OMEPRAZOLE MAGNESIUM
     Indication: Gastrooesophageal reflux disease
     Dosage: IKD
     Route: 048
     Dates: start: 2012
  7. PREVACID [Suspect]
     Active Substance: LANSOPRAZOLE
     Route: 065
  8. PREVACID IV [Suspect]
     Active Substance: LANSOPRAZOLE
     Indication: Gastrooesophageal reflux disease
     Route: 065
     Dates: start: 200301, end: 201808
  9. PREVACID IV [Suspect]
     Active Substance: LANSOPRAZOLE
     Indication: Gastrooesophageal reflux disease
     Route: 065
     Dates: start: 2012
  10. PROTONIX [Suspect]
     Active Substance: PANTOPRAZOLE SODIUM
     Indication: Gastrooesophageal reflux disease
     Route: 065
     Dates: start: 200301, end: 201808
  11. PROTONIX [Suspect]
     Active Substance: PANTOPRAZOLE SODIUM
     Indication: Gastrooesophageal reflux disease
     Dosage: GENERIC, IDK
     Route: 065
     Dates: start: 2008
  12. PROTONIX [Suspect]
     Active Substance: PANTOPRAZOLE SODIUM
     Route: 065
     Dates: start: 200301, end: 201808
  13. CELEBREX [Concomitant]
     Active Substance: CELECOXIB
     Indication: Pain
     Dates: start: 2009
  14. CELEBREX [Concomitant]
     Active Substance: CELECOXIB
     Indication: Swelling
     Dates: start: 2009
  15. ULTRAM [Concomitant]
     Active Substance: TRAMADOL HYDROCHLORIDE
     Indication: Pain management
     Dates: start: 2009
  16. BIOTIN [Concomitant]
     Active Substance: BIOTIN
     Indication: Energy increased
     Dates: start: 2012
  17. VITAMIN D3 [Concomitant]
     Active Substance: CHOLECALCIFEROL
     Indication: Hypovitaminosis
     Dates: start: 2012
  18. VITAMIN B12 [Concomitant]
     Active Substance: CYANOCOBALAMIN
     Indication: Energy increased
     Dates: start: 2012
  19. IRON [Concomitant]
     Active Substance: IRON
     Indication: Iron deficiency
     Dates: start: 2012
  20. PEPCID [Concomitant]
     Active Substance: FAMOTIDINE
     Dates: start: 2004, end: 2005
  21. ZANTAC [Concomitant]
     Active Substance: RANITIDINE HYDROCHLORIDE
     Dates: start: 2004, end: 2005
  22. TUMS [Concomitant]
     Active Substance: CALCIUM CARBONATE
     Dates: start: 2004, end: 2005
  23. GABAPENTIN [Concomitant]
     Active Substance: GABAPENTIN
  24. CITALOPRAM [Concomitant]
     Active Substance: CITALOPRAM HYDROBROMIDE
  25. TYLENOL [Concomitant]
     Active Substance: ACETAMINOPHEN
  26. CARAFATE [Concomitant]
     Active Substance: SUCRALFATE
  27. PENICILLIN [Concomitant]
     Active Substance: PENICILLIN
  28. HYDROCODONE/ HOM [Concomitant]
  29. HYDROCHLOROTHIAZIDE\TRIAMTERENE [Concomitant]
     Active Substance: HYDROCHLOROTHIAZIDE\TRIAMTERENE
  30. DICLOFENAC [Concomitant]
     Active Substance: DICLOFENAC
  31. CYCLOBENZAPRINE [Concomitant]
     Active Substance: CYCLOBENZAPRINE
  32. HORIZANT [Concomitant]
     Active Substance: GABAPENTIN ENACARBIL
  33. CLINDAMYCIN [Concomitant]
     Active Substance: CLINDAMYCIN
  34. ACETAMINOPHEN\HYDROCODONE BITARTRATE [Concomitant]
     Active Substance: ACETAMINOPHEN\HYDROCODONE BITARTRATE
  35. NITROFURANTOIN [Concomitant]
     Active Substance: NITROFURANTOIN
  36. METRONIDAZOLE [Concomitant]
     Active Substance: METRONIDAZOLE
  37. DICYCLOMINE [Concomitant]
     Active Substance: DICYCLOMINE HYDROCHLORIDE
  38. SULFAMETHOXAZOLE\TRIMETHOPRIM [Concomitant]
     Active Substance: SULFAMETHOXAZOLE\TRIMETHOPRIM
  39. FLUTICASONE [Concomitant]
     Active Substance: FLUTICASONE
  40. ATROPINE SULFATE\DIPHENOXYLATE [Concomitant]
     Active Substance: ATROPINE SULFATE\DIPHENOXYLATE
  41. MELOXICAM [Concomitant]
     Active Substance: MELOXICAM
  42. FERRETS [Concomitant]
  43. TIZANIDINE [Concomitant]
     Active Substance: TIZANIDINE
  44. ERYTHROMYCIN [Concomitant]
     Active Substance: ERYTHROMYCIN
  45. CONTULOSE [Concomitant]
  46. BACTROBAN [Concomitant]
     Active Substance: MUPIROCIN\MUPIROCIN CALCIUM
  47. CALCIUM [Concomitant]
     Active Substance: CALCIUM
  48. MINERALS\VITAMINS [Concomitant]
     Active Substance: MINERALS\VITAMINS
  49. MACROBID [Concomitant]
     Active Substance: NITROFURANTOIN\NITROFURANTOIN MONOHYDRATE
  50. ISOFLAVONES SOY [Concomitant]
     Active Substance: ISOFLAVONES SOY
  51. VITAMIN B6 [Concomitant]
     Active Substance: PYRIDOXINE HYDROCHLORIDE
  52. THIAMINE [Concomitant]
     Active Substance: THIAMINE
  53. DOCUSATE SODIUM\SENNOSIDES [Concomitant]
     Active Substance: DOCUSATE SODIUM\SENNOSIDES
  54. CHLORHEXIDINE GLUCONATE [Concomitant]
     Active Substance: CHLORHEXIDINE GLUCONATE

REACTIONS (2)
  - Chronic kidney disease [Not Recovered/Not Resolved]
  - Renal failure [Unknown]

NARRATIVE: CASE EVENT DATE: 20140101
